FAERS Safety Report 7912077-7 (Version None)
Quarter: 2011Q4

REPORT INFORMATION
  Report Type: 
  Country: None (occurrence: None)
  Receive Date: 20111114
  Receipt Date: 20111104
  Transmission Date: 20120403
  Serious: Yes (Other)
  Sender: FDA-Public Use
  Company Number: GB-EISAI INC-E7389-01664-SPO-GB

PATIENT
  Sex: Female
  Weight: 105 kg

DRUGS (5)
  1. DEXAMETHASONE [Concomitant]
     Route: 048
  2. HALAVEN [Suspect]
     Dosage: UNKNOWN
     Route: 041
     Dates: start: 20110810
  3. HALAVEN [Suspect]
     Dosage: UNKNOWN
     Route: 041
     Dates: start: 20110101
  4. ONDANSETRON [Concomitant]
     Indication: PREMEDICATION
     Route: 042
  5. DEXAMETHASONE [Concomitant]
     Indication: PREMEDICATION
     Route: 042

REACTIONS (4)
  - OEDEMA [None]
  - COUGH [None]
  - JOINT SWELLING [None]
  - OEDEMA PERIPHERAL [None]
